FAERS Safety Report 9159691 (Version 2)
Quarter: 2013Q2

REPORT INFORMATION
  Report Type: Report from Study
  Country: GB (occurrence: GB)
  Receive Date: 20130313
  Receipt Date: 20130603
  Transmission Date: 20140414
  Serious: Yes (Death)
  Sender: FDA-Public Use
  Company Number: GB-INCYTE CORPORATION-2013IN000449

PATIENT
  Sex: 0

DRUGS (2)
  1. INC424 [Suspect]
     Indication: MYELOFIBROSIS
     Dosage: 15 MG, BID
     Route: 065
     Dates: start: 20120713, end: 201207
  2. INC424 [Suspect]
     Dosage: 5 MG, BID
     Route: 065
     Dates: start: 20130219

REACTIONS (1)
  - Bronchopneumonia [Fatal]
